FAERS Safety Report 16673561 (Version 1)
Quarter: 2019Q3

REPORT INFORMATION
  Report Type: Spontaneous
  Country: US (occurrence: US)
  Receive Date: 20190806
  Receipt Date: 20190806
  Transmission Date: 20191004
  Serious: Yes (Other)
  Sender: FDA-Public Use
  Company Number: US-APOTEX-2019AP019597

PATIENT
  Age: 59 Year
  Sex: Male

DRUGS (12)
  1. MYCOPHENOLATE [Suspect]
     Active Substance: MYCOPHENOLIC ACID
     Indication: CHRONIC ACTINIC DERMATITIS
     Dosage: UNK
     Route: 048
  2. AZATHIOPRINE. [Suspect]
     Active Substance: AZATHIOPRINE
     Indication: CHRONIC ACTINIC DERMATITIS
     Dosage: UNK
     Route: 048
     Dates: start: 201808
  3. PREDNISONE. [Suspect]
     Active Substance: PREDNISONE
     Indication: PHOTODERMATOSIS
  4. PREDNISONE. [Suspect]
     Active Substance: PREDNISONE
     Indication: CHRONIC ACTINIC DERMATITIS
     Dosage: UNK
     Route: 065
  5. THALIDOMIDE [Suspect]
     Active Substance: THALIDOMIDE
     Indication: CHRONIC ACTINIC DERMATITIS
     Dosage: UNK
     Route: 048
  6. CYCLOSPORINE. [Suspect]
     Active Substance: CYCLOSPORINE
     Indication: CHRONIC ACTINIC DERMATITIS
     Dosage: UNK
     Route: 048
  7. CYCLOSPORINE. [Suspect]
     Active Substance: CYCLOSPORINE
     Indication: PHOTODERMATOSIS
  8. MYCOPHENOLATE [Suspect]
     Active Substance: MYCOPHENOLIC ACID
     Indication: PHOTODERMATOSIS
  9. AZATHIOPRINE. [Suspect]
     Active Substance: AZATHIOPRINE
     Indication: PHOTODERMATOSIS
  10. TACROLIMUS. [Suspect]
     Active Substance: TACROLIMUS
     Indication: PHOTODERMATOSIS
  11. TACROLIMUS. [Suspect]
     Active Substance: TACROLIMUS
     Indication: CHRONIC ACTINIC DERMATITIS
     Dosage: UNK
     Route: 061
  12. THALIDOMIDE [Suspect]
     Active Substance: THALIDOMIDE
     Indication: PHOTODERMATOSIS

REACTIONS (2)
  - Therapeutic product effect incomplete [Unknown]
  - Leukopenia [Unknown]
